FAERS Safety Report 6155556-8 (Version None)
Quarter: 2009Q2

REPORT INFORMATION
  Report Type: 
  Country: None (occurrence: None)
  Receive Date: 20090413
  Receipt Date: 20090331
  Transmission Date: 20091009
  Serious: Yes (Other)
  Sender: FDA-Public Use
  Company Number: 2009AP001350

PATIENT
  Age: 61 Year
  Sex: Female

DRUGS (4)
  1. DESMOPRESSIN ACETATE [Suspect]
     Indication: BLADDER DISORDER
     Dosage: 0.6 MG; QD; PO, 0.4 MG; QD; PO
     Route: 048
  2. IMIPRAMINE HYDROCHLORIDE [Concomitant]
  3. HYDROXYZINE [Concomitant]
  4. TOLTERODINE TARTRATE [Concomitant]

REACTIONS (6)
  - FLUID RETENTION [None]
  - HYPONATRAEMIA [None]
  - INCORRECT DOSE ADMINISTERED [None]
  - INSOMNIA [None]
  - MUSCLE SPASMS [None]
  - POLLAKIURIA [None]
